FAERS Safety Report 13357099 (Version 1)
Quarter: 2017Q1

REPORT INFORMATION
  Report Type: Report from Study
  Country: NL (occurrence: NL)
  Receive Date: 20170322
  Receipt Date: 20170322
  Transmission Date: 20170429
  Serious: Yes (Hospitalization)
  Sender: FDA-Public Use
  Company Number: NL-ASTRAZENECA-2017SE27794

PATIENT
  Age: 49 Year

DRUGS (4)
  1. RADIOTHERAPY [Suspect]
     Active Substance: RADIATION THERAPY
     Indication: NON-SMALL CELL LUNG CANCER
     Dosage: 27.5GY, 24 FRACTIONS, LOCAL
     Route: 065
     Dates: start: 20161010
  2. RADIOTHERAPY [Suspect]
     Active Substance: RADIATION THERAPY
     Indication: NON-SMALL CELL LUNG CANCER
     Dosage: 27.5GY, 24 FRACTIONS, LOCAL
     Route: 065
     Dates: start: 20161110
  3. OLAPARIB [Suspect]
     Active Substance: OLAPARIB
     Indication: NON-SMALL CELL LUNG CANCER
     Route: 048
     Dates: start: 20161112
  4. OLAPARIB [Suspect]
     Active Substance: OLAPARIB
     Indication: NON-SMALL CELL LUNG CANCER
     Route: 048
     Dates: start: 20161008

REACTIONS (1)
  - Radiation pneumonitis [Unknown]

NARRATIVE: CASE EVENT DATE: 20170314
